FAERS Safety Report 6908483-X (Version None)
Quarter: 2010Q3

REPORT INFORMATION
  Report Type: 
  Country: None (occurrence: None)
  Receive Date: 20100805
  Receipt Date: 20100727
  Transmission Date: 20110219
  Serious: Yes (Hospitalization)
  Sender: FDA-Public Use
  Company Number: JP-PFIZER INC-2010092042

PATIENT
  Age: 83 Year
  Sex: Female

DRUGS (8)
  1. NORVASC [Suspect]
     Indication: HYPERTENSION
     Dosage: 2.5 MG/DAY
     Route: 048
  2. BLOPRESS [Suspect]
     Indication: HYPERTENSION
     Dosage: UNK
  3. BLOPRESS [Suspect]
     Indication: CARDIAC FAILURE
  4. THEO-DUR [Suspect]
     Indication: ASTHMA
     Dosage: UNK
     Route: 048
  5. ADOAIR [Suspect]
     Indication: ASTHMA
     Dosage: UNK
  6. HOKUNALIN [Suspect]
     Indication: ASTHMA
     Dosage: UNK
     Route: 003
  7. VITAMIN B6 [Suspect]
     Indication: RASH
     Dosage: UNK
  8. VITAMIN B-12 [Suspect]
     Indication: RASH
     Dosage: UNK

REACTIONS (2)
  - PNEUMONIA [None]
  - RASH [None]
